FAERS Safety Report 13231123 (Version 1)
Quarter: 2017Q1

REPORT INFORMATION
  Report Type: Spontaneous
  Country: US (occurrence: US)
  Receive Date: 20170214
  Receipt Date: 20170214
  Transmission Date: 20170428
  Serious: No
  Sender: FDA-Public Use
  Company Number: US-BAYER-2017-024384

PATIENT
  Weight: 117.9 kg

DRUGS (1)
  1. GADAVIST [Suspect]
     Active Substance: GADOBUTROL
     Indication: MYASTHENIA GRAVIS
     Dosage: 10 ML, ONCE
     Dates: start: 20170206, end: 20170206

REACTIONS (4)
  - Feeling cold [None]
  - Asthenia [None]
  - Retching [None]
  - Diarrhoea [None]
